FAERS Safety Report 13505023 (Version 1)
Quarter: 2017Q2

REPORT INFORMATION
  Report Type: Spontaneous
  Country: US (occurrence: US)
  Receive Date: 20170502
  Receipt Date: 20170502
  Transmission Date: 20170830
  Serious: Yes (Other)
  Sender: FDA-Public Use
  Company Number: US-MUNDIPHARMA DS AND PHARMACOVIGILANCE-USA-2017-0138517

PATIENT
  Age: 44 Year
  Sex: Female

DRUGS (3)
  1. BUTRANS [Suspect]
     Active Substance: BUPRENORPHINE
     Dosage: 5 MCG/HR, WEEKLY
     Route: 062
     Dates: start: 2016
  2. BUTRANS [Suspect]
     Active Substance: BUPRENORPHINE
     Dosage: UNK MCG/HR, WEEKLY
     Route: 062
     Dates: end: 20170404
  3. BUTRANS [Suspect]
     Active Substance: BUPRENORPHINE
     Indication: PRODUCT USED FOR UNKNOWN INDICATION
     Dosage: 20 MCG/HR, WEEKLY
     Route: 062
     Dates: start: 20170404, end: 201704

REACTIONS (8)
  - Drug withdrawal syndrome [Unknown]
  - Thermal burn [Unknown]
  - Cancer surgery [Unknown]
  - Pruritus [Unknown]
  - Burning sensation [Unknown]
  - Hyperhidrosis [Unknown]
  - Headache [Unknown]
  - Restlessness [Unknown]

NARRATIVE: CASE EVENT DATE: 201704
